FAERS Safety Report 14405756 (Version 1)
Quarter: 2018Q1

REPORT INFORMATION
  Report Type: Spontaneous
  Country: US (occurrence: US)
  Receive Date: 20180118
  Receipt Date: 20180118
  Transmission Date: 20180509
  Serious: Yes (Hospitalization, Other)
  Sender: FDA-Public Use
  Company Number: US-JNJFOC-20180110145

PATIENT
  Sex: Female
  Weight: 77.11 kg

DRUGS (11)
  1. FENTANYL. [Concomitant]
     Active Substance: FENTANYL
     Indication: PAIN
     Route: 065
  2. ACIPHEX [Concomitant]
     Active Substance: RABEPRAZOLE SODIUM
     Route: 065
  3. HYDROCORTISONE. [Concomitant]
     Active Substance: HYDROCORTISONE
     Dosage: 20 MG IN MORNING AND 10 MG IN AFTERNOON
     Route: 065
  4. DURAGESIC [Suspect]
     Active Substance: FENTANYL
     Indication: PAIN
     Route: 062
     Dates: end: 2017
  5. DURAGESIC [Suspect]
     Active Substance: FENTANYL
     Indication: PAIN
     Route: 062
  6. DESMOPRESSIN ACETATE. [Concomitant]
     Active Substance: DESMOPRESSIN ACETATE
     Indication: DIABETES INSIPIDUS
     Dosage: 4 TABS IN MORNING AND 4 TABS 12 HOURS LATER
     Route: 065
  7. MENTHOL. [Concomitant]
     Active Substance: MENTHOL
     Indication: BACK DISORDER
  8. DURAGESIC [Suspect]
     Active Substance: FENTANYL
     Indication: PAIN
     Route: 062
  9. DOCUSATE SODIUM. [Concomitant]
     Active Substance: DOCUSATE SODIUM
     Indication: CONSTIPATION
     Route: 065
  10. FLUDROCORTISONE [Concomitant]
     Active Substance: FLUDROCORTISONE
     Indication: BLOOD PRESSURE ABNORMAL
     Dosage: DOSE 0.1 (UNITS UNSPECIFIED), IN MORNING
     Route: 065
  11. LIDOCAINE. [Concomitant]
     Active Substance: LIDOCAINE
     Route: 065

REACTIONS (22)
  - Suicidal ideation [Recovered/Resolved]
  - Pneumonia [Recovered/Resolved]
  - Pituitary-dependent Cushing^s syndrome [Unknown]
  - Aphonia [Recovered/Resolved]
  - Osteomyelitis [Unknown]
  - Pneumothorax [Recovered/Resolved]
  - Neoplasm [Recovered/Resolved]
  - Palpitations [Unknown]
  - Sinus disorder [Not Recovered/Not Resolved]
  - Skin irritation [Not Recovered/Not Resolved]
  - Headache [Unknown]
  - Wrong technique in product usage process [Unknown]
  - Underdose [Unknown]
  - Visual impairment [Not Recovered/Not Resolved]
  - Insomnia [Not Recovered/Not Resolved]
  - Respiratory rate decreased [Not Recovered/Not Resolved]
  - Pain [Unknown]
  - Product adhesion issue [Unknown]
  - Coma [Recovered/Resolved]
  - Muscle twitching [Not Recovered/Not Resolved]
  - Head discomfort [Recovered/Resolved]
  - Inappropriate schedule of drug administration [Unknown]

NARRATIVE: CASE EVENT DATE: 2001
